FAERS Safety Report 5206557-5 (Version None)
Quarter: 2007Q1

REPORT INFORMATION
  Report Type: 
  Country: None (occurrence: None)
  Receive Date: 20070109
  Receipt Date: 20070103
  Transmission Date: 20070707
  Serious: Yes (Hospitalization)
  Sender: FDA-Public Use
  Company Number: 234543

PATIENT
  Age: 11 Year
  Sex: Female
  Weight: 32.4 kg

DRUGS (7)
  1. NUTROPIN [Suspect]
     Indication: TURNER'S SYNDROME
     Dosage: 1.7 MG, QHS, SUBCUTANEOUS
     Route: 058
     Dates: start: 20040806
  2. MVI (MULTIVITAMINS NOS) [Concomitant]
  3. FLUORIDE (FLUORIDE NOS) [Concomitant]
  4. BOOST (NUTRITIONAL SUPPLEMENT) [Concomitant]
  5. PREDNISONE TAB [Concomitant]
  6. HUMIRA [Concomitant]
  7. IMODIUM [Concomitant]

REACTIONS (2)
  - APPENDICITIS [None]
  - DIARRHOEA HAEMORRHAGIC [None]
